FAERS Safety Report 7474260-7 (Version None)
Quarter: 2011Q2

REPORT INFORMATION
  Report Type: 
  Country: None (occurrence: None)
  Receive Date: 20110511
  Receipt Date: 20110505
  Transmission Date: 20111010
  Serious: Yes (Hospitalization, Other)
  Sender: FDA-Public Use
  Company Number: US-RB-027054-11

PATIENT
  Sex: Female

DRUGS (3)
  1. SUBOXONE [Suspect]
     Route: 060
     Dates: start: 20110418, end: 20110429
  2. SUBOXONE [Suspect]
     Indication: DRUG DEPENDENCE
     Route: 060
     Dates: start: 20100101, end: 20110401
  3. CHEMOTHERAPY [Suspect]
     Indication: BREAST CANCER
     Dosage: EVERY THREE WEEKS
     Route: 065
     Dates: end: 20110301

REACTIONS (7)
  - LOSS OF CONSCIOUSNESS [None]
  - UNDERDOSE [None]
  - NERVOUSNESS [None]
  - HEADACHE [None]
  - BREAST CANCER [None]
  - DYSPNOEA [None]
  - INSOMNIA [None]
